FAERS Safety Report 25801502 (Version 1)
Quarter: 2025Q3

REPORT INFORMATION
  Report Type: Spontaneous
  Country: EU (occurrence: EU)
  Receive Date: 20250915
  Receipt Date: 20250915
  Transmission Date: 20251021
  Serious: Yes (Other)
  Sender: AMGEN
  Company Number: EU-AMGEN-DEUSP2025181341

PATIENT
  Age: 65 Year
  Sex: Male

DRUGS (3)
  1. KYPROLIS [Suspect]
     Active Substance: CARFILZOMIB
     Indication: Plasma cell myeloma refractory
     Route: 065
     Dates: start: 202404, end: 202504
  2. DEXAMETHASONE [Concomitant]
     Active Substance: DEXAMETHASONE
     Route: 065
     Dates: end: 202504
  3. TOLODODEKIN ALFA [Concomitant]
     Active Substance: TOLODODEKIN ALFA
     Route: 065

REACTIONS (3)
  - Thrombosis [Unknown]
  - Muscular weakness [Unknown]
  - Muscle spasms [Unknown]

NARRATIVE: CASE EVENT DATE: 20240901
